FAERS Safety Report 25384862 (Version 2)
Quarter: 2025Q2

REPORT INFORMATION
  Report Type: Spontaneous
  Country: US (occurrence: US)
  Receive Date: 20250602
  Receipt Date: 20250609
  Transmission Date: 20250716
  Serious: No
  Sender: AMGEN
  Company Number: US-AMGEN-USASP2025103965

PATIENT
  Age: 63 Year
  Sex: Female
  Weight: 112.7 kg

DRUGS (1)
  1. ENBREL [Suspect]
     Active Substance: ETANERCEPT
     Indication: Rheumatoid arthritis
     Dosage: 50 MILLIGRAM, QWK
     Route: 058
     Dates: start: 20250212

REACTIONS (2)
  - Dry throat [Unknown]
  - Device difficult to use [Unknown]

NARRATIVE: CASE EVENT DATE: 20250101
